FAERS Safety Report 6634414-6 (Version None)
Quarter: 2010Q1

REPORT INFORMATION
  Report Type: 
  Country: None (occurrence: None)
  Receive Date: 20100315
  Receipt Date: 20100305
  Transmission Date: 20100710
  Serious: Yes (Other)
  Sender: FDA-Public Use
  Company Number: JP-ROCHE-686465

PATIENT
  Age: 50 Year
  Sex: Female
  Weight: 50 kg

DRUGS (5)
  1. HERCEPTIN [Suspect]
     Indication: BREAST CANCER
     Route: 041
     Dates: start: 20090305, end: 20090305
  2. HERCEPTIN [Suspect]
     Route: 041
     Dates: start: 20090312, end: 20090403
  3. HERCEPTIN [Suspect]
     Route: 041
     Dates: start: 20090430, end: 20100105
  4. ADRIACIN [Suspect]
     Indication: BREAST CANCER
     Route: 040
     Dates: start: 20081204, end: 20090206
  5. ENDOXAN [Suspect]
     Indication: BREAST CANCER
     Route: 042
     Dates: start: 20081204, end: 20090206

REACTIONS (1)
  - ATRIOVENTRICULAR BLOCK [None]
